FAERS Safety Report 6239766-7 (Version None)
Quarter: 2009Q2

REPORT INFORMATION
  Report Type: 
  Country: None (occurrence: None)
  Receive Date: 20090622
  Receipt Date: 20090619
  Transmission Date: 20091009
  Serious: Yes (Life-Threatening, Disabling)
  Sender: FDA-Public Use
  Company Number: DE-SANOFI-SYNTHELABO-D01200903795

PATIENT

DRUGS (4)
  1. INTEGRILIN [Concomitant]
  2. ASA LOW DOSE [Concomitant]
     Indication: ACUTE CORONARY SYNDROME
     Dosage: AT LEAST 300 MG D1; 75-100 MG FROM D2 TO D30
     Route: 048
     Dates: start: 20090603
  3. CLOPIDOGREL [Suspect]
     Indication: ACUTE CORONARY SYNDROME
     Dosage: 600 MG LD D1 FOLLOWED BY 150 MG FROM D2 TO D7; 75 MG FROM D8 TO 30
     Route: 048
     Dates: start: 20090603
  4. HEPARIN [Concomitant]

REACTIONS (3)
  - COMPARTMENT SYNDROME [None]
  - POST PROCEDURAL HAEMORRHAGE [None]
  - RENAL FAILURE [None]
